FAERS Safety Report 6615088-7 (Version None)
Quarter: 2010Q1

REPORT INFORMATION
  Report Type: 
  Country: None (occurrence: None)
  Receive Date: 20100226
  Receipt Date: 20100215
  Transmission Date: 20100710
  Serious: Yes (Other)
  Sender: FDA-Public Use
  Company Number: 1-21669051

PATIENT
  Age: 27 Year
  Sex: Male

DRUGS (1)
  1. METRONIDAZOLE [Suspect]
     Indication: BRAIN ABSCESS
     Dosage: 60 GRAMS (CUMULATIVE)

REACTIONS (4)
  - CENTRAL NERVOUS SYSTEM LESION [None]
  - CEREBELLAR SYNDROME [None]
  - NEUROPATHY PERIPHERAL [None]
  - NEUROTOXICITY [None]
